FAERS Safety Report 6700894-0 (Version None)
Quarter: 2010Q2

REPORT INFORMATION
  Report Type: 
  Country: None (occurrence: None)
  Receive Date: 20100428
  Receipt Date: 20100416
  Transmission Date: 20101027
  Serious: Yes (Life-Threatening, Other)
  Sender: FDA-Public Use
  Company Number: NL-PFIZER INC-2008079672

PATIENT
  Age: 53 Year
  Sex: Male

DRUGS (2)
  1. SERTRALINE HCL [Suspect]
     Indication: MAJOR DEPRESSION
  2. NAPROXEN [Suspect]
     Dosage: 1000 MG, 2X/DAY

REACTIONS (4)
  - CARCINOMA IN SITU [None]
  - DYSPNOEA [None]
  - HAEMATOMA [None]
  - HAEMORRHAGE [None]
